FAERS Safety Report 6065228-6 (Version None)
Quarter: 2009Q1

REPORT INFORMATION
  Report Type: 
  Country: None (occurrence: None)
  Receive Date: 20090204
  Receipt Date: 20090126
  Transmission Date: 20090719
  Serious: Yes (Hospitalization, Other)
  Sender: FDA-Public Use
  Company Number: PHBS2009IT00666

PATIENT
  Age: 40 Year
  Sex: Female

DRUGS (7)
  1. METOPROLOL TARTRATE [Suspect]
     Indication: ACUTE MYOCARDIAL INFARCTION
     Dosage: 100 MG, BID
  2. ACETYLSALICYLIC ACID SRT [Concomitant]
     Dosage: 100 MG, TID
  3. ENOXAPARIN SODIUM [Concomitant]
     Dosage: 6000 IU, BID
  4. ENOXAPARIN SODIUM [Concomitant]
     Dosage: 4000 IU, BID
  5. FOLIC ACID [Concomitant]
  6. FERRUM [Concomitant]
  7. NITRATES [Concomitant]

REACTIONS (7)
  - ANGINA PECTORIS [None]
  - CAESAREAN SECTION [None]
  - DRUG EXPOSURE DURING PREGNANCY [None]
  - DYSPNOEA [None]
  - ELECTROCARDIOGRAM ST SEGMENT DEPRESSION [None]
  - HYPOXIA [None]
  - PREMATURE LABOUR [None]
